FAERS Safety Report 8222698-2 (Version None)
Quarter: 2012Q1

REPORT INFORMATION
  Report Type: 
  Country: None (occurrence: None)
  Receive Date: 20120320
  Receipt Date: 20120308
  Transmission Date: 20120608
  Serious: Yes (Other)
  Sender: FDA-Public Use
  Company Number: US-ELI_LILLY_AND_COMPANY-US201110000340

PATIENT
  Sex: Female
  Weight: 46.5 kg

DRUGS (11)
  1. FORTEO [Suspect]
     Indication: OSTEOPOROSIS
     Dosage: 20 UG, QD
     Route: 058
     Dates: start: 20110407, end: 20110902
  2. TYLENOL ARTHRITIS [Concomitant]
     Dosage: 650 MG, QID
  3. DOVONEX [Concomitant]
     Dosage: 0.005 %, QD
  4. BENADRYL [Concomitant]
     Dosage: 25 MG, QD
  5. CALCIUM + VITAMIN D [Concomitant]
     Dosage: UNK, QD
  6. ACTONEL [Concomitant]
     Dosage: 150 MG, WEEKLY (1/W)
  7. ASCORBIC ACID [Concomitant]
     Dosage: 500 MG, QD
  8. AMOXICILLIN [Concomitant]
  9. CLOBETASOL PROPIONATE [Concomitant]
     Dosage: 0.05 %, EACH EVENING
  10. ASPERCREME [Concomitant]
  11. ASPIRIN [Concomitant]
     Dosage: 81 MG, QD

REACTIONS (1)
  - ATRIAL FIBRILLATION [None]
